FAERS Safety Report 9167739 (Version 1)
Quarter: 2013Q1

REPORT INFORMATION
  Report Type: Report from Study
  Country: CA (occurrence: CA)
  Receive Date: 20130318
  Receipt Date: 20130318
  Transmission Date: 20140127
  Serious: Yes (Other)
  Sender: FDA-Public Use
  Company Number: PHHY2013CA025234

PATIENT
  Age: 48 Year
  Sex: Female

DRUGS (1)
  1. CLOZARIL [Suspect]
     Dosage: UNK UKN, UNK
     Dates: start: 20040714

REACTIONS (4)
  - Rectal cancer [Unknown]
  - Adenocarcinoma [Unknown]
  - Painful defaecation [Unknown]
  - Rectal haemorrhage [Unknown]
